FAERS Safety Report 18785642 (Version 1)
Quarter: 2021Q1

REPORT INFORMATION
  Report Type: Spontaneous
  Country: JP (occurrence: JP)
  Receive Date: 20210125
  Receipt Date: 20210125
  Transmission Date: 20210419
  Serious: Yes (Hospitalization)
  Sender: FDA-Public Use
  Company Number: JP-FERRINGPH-2020FE08516

PATIENT
  Age: 73 Year
  Sex: Male

DRUGS (10)
  1. LOXONIN [Concomitant]
     Active Substance: LOXOPROFEN SODIUM
  2. CARVEDILOL. [Concomitant]
     Active Substance: CARVEDILOL
  3. BELSOMRA [Concomitant]
     Active Substance: SUVOREXANT
  4. GLACTIV [Concomitant]
     Active Substance: SITAGLIPTIN
  5. DESMOPRESSIN KYOWA [Suspect]
     Active Substance: DESMOPRESSIN
     Indication: DIABETES INSIPIDUS
     Route: 065
  6. PREDONINE [Concomitant]
     Active Substance: PREDNISOLONE
  7. GLIMEPIRIDE. [Concomitant]
     Active Substance: GLIMEPIRIDE
  8. LANSOPRAZOLE. [Concomitant]
     Active Substance: LANSOPRAZOLE
  9. BUP?4 [Concomitant]
     Active Substance: PROPIVERINE
  10. ROZEREM [Concomitant]
     Active Substance: RAMELTEON

REACTIONS (2)
  - Fall [Unknown]
  - Therapeutic response decreased [Unknown]
